FAERS Safety Report 12549377 (Version 1)
Quarter: 2016Q3

REPORT INFORMATION
  Report Type: Spontaneous
  Country: US (occurrence: US)
  Receive Date: 20160712
  Receipt Date: 20160712
  Transmission Date: 20161109
  Serious: No
  Sender: FDA-Public Use
  Company Number: US-ALLERGAN-1522187US

PATIENT
  Age: 28 Year
  Sex: Male
  Weight: 104.3 kg

DRUGS (3)
  1. DALVANCE [Suspect]
     Active Substance: DALBAVANCIN
     Indication: CELLULITIS
     Dosage: 1000 MG, SINGLE
     Route: 042
     Dates: start: 20140912, end: 20140912
  2. DALVANCE [Suspect]
     Active Substance: DALBAVANCIN
     Dosage: 500 MG, SINGLE
     Route: 042
     Dates: start: 20140919, end: 20140919
  3. DALVANCE [Suspect]
     Active Substance: DALBAVANCIN
     Dosage: UNK
     Route: 065

REACTIONS (1)
  - Hypersensitivity [Recovered/Resolved]

NARRATIVE: CASE EVENT DATE: 201409
